FAERS Safety Report 15239646 (Version 3)
Quarter: 2018Q4

REPORT INFORMATION
  Report Type: Spontaneous
  Country: JP (occurrence: JP)
  Receive Date: 20180803
  Receipt Date: 20181004
  Transmission Date: 20190204
  Serious: Yes (Hospitalization)
  Sender: FDA-Public Use
  Company Number: JP-ALLERGAN-1837906US

PATIENT
  Age: 87 Year
  Sex: Male
  Weight: 51 kg

DRUGS (9)
  1. REMINYL [Suspect]
     Active Substance: GALANTAMINE
     Dosage: 8 MG, DAILY
     Route: 048
     Dates: start: 20171221, end: 20180201
  2. LUNESTA [Suspect]
     Active Substance: ESZOPICLONE
     Indication: PRODUCT USED FOR UNKNOWN INDICATION
     Dosage: 1 MG, DAILY
     Route: 048
     Dates: start: 20170921
  3. QUETIAPINE. [Concomitant]
     Active Substance: QUETIAPINE
     Indication: PRODUCT USED FOR UNKNOWN INDICATION
     Dosage: UNK
     Dates: start: 20170921
  4. REMINYL [Suspect]
     Active Substance: GALANTAMINE
     Indication: PRODUCT USED FOR UNKNOWN INDICATION
     Dosage: 4 MG, TWICE A DAY
     Dates: start: 20180215
  5. REMINYL [Suspect]
     Active Substance: GALANTAMINE
     Dosage: 8 MG, TWICE A DAY
     Route: 048
     Dates: start: 20180202, end: 20180214
  6. BELSOMRA [Suspect]
     Active Substance: SUVOREXANT
     Indication: PRODUCT USED FOR UNKNOWN INDICATION
     Dosage: 15 MG, DAILY
     Route: 048
     Dates: start: 20170921
  7. MEMANTINE HCL - BP [Suspect]
     Active Substance: MEMANTINE
     Dosage: 15 MG, DAILY
     Route: 048
     Dates: start: 20170921, end: 20180214
  8. MEMANTINE HCL - BP [Suspect]
     Active Substance: MEMANTINE
     Indication: DEMENTIA ALZHEIMER^S TYPE
     Dosage: 10 MG, DAILY
     Route: 048
     Dates: start: 20180215
  9. TRAZODONE [Suspect]
     Active Substance: TRAZODONE HYDROCHLORIDE
     Indication: PRODUCT USED FOR UNKNOWN INDICATION
     Dosage: 50 MG, DAILY
     Route: 048
     Dates: start: 20170921

REACTIONS (8)
  - Dehydration [Unknown]
  - Altered state of consciousness [Recovered/Resolved]
  - Hyperkalaemia [Unknown]
  - Renal impairment [Unknown]
  - Poriomania [Unknown]
  - Insomnia [Unknown]
  - Abnormal behaviour [Recovered/Resolved]
  - Hyperuricaemia [Unknown]

NARRATIVE: CASE EVENT DATE: 20180217
